FAERS Safety Report 25942605 (Version 1)
Quarter: 2025Q4

REPORT INFORMATION
  Report Type: Other
  Country: GB (occurrence: GB)
  Receive Date: 20251021
  Receipt Date: 20251021
  Transmission Date: 20260118
  Serious: Yes (Other)
  Sender: ASPEN
  Company Number: None

PATIENT

DRUGS (5)
  1. DEXAMETHASONE [Suspect]
     Active Substance: DEXAMETHASONE
     Indication: Sudden hearing loss
     Dosage: ...SPRAY ...
     Route: 065
     Dates: start: 20251001, end: 20251009
  2. ACETIC ACID [Suspect]
     Active Substance: ACETIC ACID
     Indication: Sudden hearing loss
     Dosage: ...SPRAY...
     Route: 065
     Dates: start: 20251001, end: 20251009
  3. NEOMYCIN [Suspect]
     Active Substance: NEOMYCIN
     Indication: Sudden hearing loss
     Dosage: ...SPRAY...
     Route: 065
     Dates: start: 20251001, end: 20251009
  4. CLOTRIMAZOLE [Concomitant]
     Active Substance: CLOTRIMAZOLE
     Indication: Product used for unknown indication
     Dosage: UNK
     Route: 065
  5. UNSPECIFIED INGREDIENT [Concomitant]
     Active Substance: UNSPECIFIED INGREDIENT
     Indication: Product used for unknown indication
     Dosage: UNK
     Route: 065

REACTIONS (2)
  - Product prescribing issue [Unknown]
  - Deafness unilateral [Not Recovered/Not Resolved]

NARRATIVE: CASE EVENT DATE: 20251001
